FAERS Safety Report 15017735 (Version 1)
Quarter: 2018Q2

REPORT INFORMATION
  Report Type: Spontaneous
  Country: GB (occurrence: GB)
  Receive Date: 20180615
  Receipt Date: 20180615
  Transmission Date: 20180711
  Serious: Yes (Hospitalization, Other)
  Sender: FDA-Public Use
  Company Number: GB-PFIZER INC-2018240237

PATIENT
  Age: 57 Year
  Sex: Female

DRUGS (1)
  1. GENOTROPIN [Suspect]
     Active Substance: SOMATROPIN
     Dosage: 0.4 MG, DAILY
     Route: 058
     Dates: start: 201711

REACTIONS (5)
  - Acute kidney injury [Unknown]
  - Myocardial infarction [Unknown]
  - Addison^s disease [Unknown]
  - Diarrhoea [Unknown]
  - Vomiting [Unknown]
